FAERS Safety Report 4697855-2 (Version None)
Quarter: 2005Q2

REPORT INFORMATION
  Report Type: 
  Country: None (occurrence: None)
  Receive Date: 20050119
  Receipt Date: 20050119
  Transmission Date: 20051028
  Serious: Yes (Other)
  Sender: FDA-Public Use
  Company Number: None

PATIENT
  Sex: Female

DRUGS (1)
  1. GENERIC L-THYROXINE [Suspect]
     Indication: HYPOTHYROIDISM
     Dosage: 50 MCG QD PO
     Route: 048

REACTIONS (3)
  - PHARMACEUTICAL PRODUCT COMPLAINT [None]
  - THERAPEUTIC RESPONSE UNEXPECTED WITH DRUG SUBSTITUTION [None]
  - THYROID FUNCTION TEST ABNORMAL [None]
